FAERS Safety Report 7044000-4 (Version None)
Quarter: 2010Q4

REPORT INFORMATION
  Report Type: 
  Country: None (occurrence: None)
  Receive Date: 20101012
  Receipt Date: 20101012
  Transmission Date: 20110411
  Serious: Yes (Hospitalization)
  Sender: FDA-Public Use
  Company Number: None

PATIENT
  Age: 20 Year
  Sex: Female
  Weight: 62.1428 kg

DRUGS (3)
  1. METOCLOPRAMIDE [Suspect]
     Indication: DYSPEPSIA
     Dosage: 10 MG 1TAB 30MIN B4 MEAL PO (ONCE 1ST DAY, TWO 2ND DAY)
     Route: 048
     Dates: start: 20101007, end: 20101008
  2. METOCLOPRAMIDE [Suspect]
     Indication: IMPAIRED GASTRIC EMPTYING
     Dosage: 10 MG 1TAB 30MIN B4 MEAL PO (ONCE 1ST DAY, TWO 2ND DAY)
     Route: 048
     Dates: start: 20101007, end: 20101008
  3. METOCLOPRAMIDE [Suspect]
     Indication: NAUSEA
     Dosage: 10 MG 1TAB 30MIN B4 MEAL PO (ONCE 1ST DAY, TWO 2ND DAY)
     Route: 048
     Dates: start: 20101007, end: 20101008

REACTIONS (13)
  - ANXIETY [None]
  - CHILLS [None]
  - CONDITION AGGRAVATED [None]
  - DIZZINESS [None]
  - DRUG INEFFECTIVE [None]
  - DYSPEPSIA [None]
  - DYSPNOEA [None]
  - FATIGUE [None]
  - FEELING JITTERY [None]
  - MUSCLE TWITCHING [None]
  - NAUSEA [None]
  - POLLAKIURIA [None]
  - TREMOR [None]
